FAERS Safety Report 16445938 (Version 2)
Quarter: 2019Q2

REPORT INFORMATION
  Report Type: Report from Study
  Country: US (occurrence: US)
  Receive Date: 20190618
  Receipt Date: 20190627
  Transmission Date: 20190711
  Serious: Yes (Death)
  Sender: FDA-Public Use
  Company Number: US-TAIHO ONCOLOGY  INC-EU-2019-02000

PATIENT
  Age: 65 Year
  Sex: Male
  Weight: 148.32 kg

DRUGS (18)
  1. GABAPENTIN. [Concomitant]
     Active Substance: GABAPENTIN
     Route: 048
  2. DULCOLAX STOOL SOFTENER [Concomitant]
     Active Substance: DOCUSATE SODIUM
     Dosage: AS NEEDED, AT BEDTIME
     Route: 048
  3. VITAMIN D3 [Concomitant]
     Active Substance: CHOLECALCIFEROL
     Route: 048
     Dates: start: 20190507
  4. HYDROMORPHONE [Concomitant]
     Active Substance: HYDROMORPHONE
     Dosage: AS NEEDED
     Route: 048
     Dates: start: 20190604
  5. METOPROLOL SUCCINATE. [Concomitant]
     Active Substance: METOPROLOL SUCCINATE
     Dosage: ER, RELEASE 24HR
     Route: 048
     Dates: start: 20190520
  6. AMLODIPINE [Concomitant]
     Active Substance: AMLODIPINE BESYLATE
     Route: 048
  7. ASPIR-81 [Concomitant]
     Active Substance: ASPIRIN
     Dosage: DELAYED RELEASE
     Route: 048
  8. DOXEPIN [Concomitant]
     Active Substance: DOXEPIN
     Dosage: AT BEDTIME
     Route: 048
  9. DILAUDID [Concomitant]
     Active Substance: HYDROMORPHONE HYDROCHLORIDE
     Dosage: SIGNIFICANT DOSES
  10. TRIAMTERENE - HYDROCHLOROTHIAZIDE [Concomitant]
     Dosage: FORM STRENGTH: TRIAMTERENE - 37.5 MG, HYDROCHLOROTHIAZIDE - 25 MG
     Route: 048
     Dates: start: 20190507
  11. DURAGESIC [Concomitant]
     Active Substance: FENTANYL
     Dosage: 75 MCG/HR TRANSDERMAL PATCH
     Route: 062
  12. LASIX [Concomitant]
     Active Substance: FUROSEMIDE
     Route: 048
     Dates: start: 20190604
  13. HYDROCODONE BITARTRATE AND ACETAMINOPHEN [Concomitant]
     Active Substance: ACETAMINOPHEN\HYDROCODONE BITARTRATE
     Dosage: FORM STRENGTH: HYDROCODONE 10 MG - ACETAMINOPHEN 325 MG?DOSE: 1-2 TABLET, PRN AS NEEDED
     Dates: start: 20190604
  14. KLOR-CON M20 [Concomitant]
     Active Substance: POTASSIUM CHLORIDE
     Dosage: EXTENDED RELEASE, WITH FOOD
     Route: 048
     Dates: start: 20190604
  15. LISINOPRIL. [Concomitant]
     Active Substance: LISINOPRIL
     Route: 048
     Dates: start: 20190604
  16. LONSURF [Suspect]
     Active Substance: TIPIRACIL HYDROCHLORIDE\TRIFLURIDINE
     Indication: ADENOCARCINOMA OF COLON
     Dosage: CURRENT CYCLE UNKNOWN
     Route: 048
     Dates: start: 20190520, end: 20190604
  17. FENTANYL. [Concomitant]
     Active Substance: FENTANYL
     Dosage: SIGNIFICANT DOSES
  18. PROCHLORPERAZINE MALEATE. [Concomitant]
     Active Substance: PROCHLORPERAZINE MALEATE
     Route: 048
     Dates: start: 20190507

REACTIONS (7)
  - Gait disturbance [Unknown]
  - Asthenia [Unknown]
  - Ascites [Unknown]
  - Disease progression [Fatal]
  - Obesity [Unknown]
  - Haemoglobin decreased [Unknown]
  - Rales [Unknown]

NARRATIVE: CASE EVENT DATE: 2019
